FAERS Safety Report 10313564 (Version 2)
Quarter: 2014Q3

REPORT INFORMATION
  Report Type: Spontaneous
  Country: US (occurrence: US)
  Receive Date: 20140718
  Receipt Date: 20140718
  Transmission Date: 20150326
  Serious: Yes (Hospitalization, Other)
  Sender: FDA-Public Use
  Company Number: US-PFIZER INC-2003183433US

PATIENT
  Age: 68 Year
  Sex: Male

DRUGS (12)
  1. FOLIC ACID. [Concomitant]
     Active Substance: FOLIC ACID
     Dosage: UNK
  2. CARBAMAT [Interacting]
     Active Substance: CARBAMAZEPINE
     Dosage: 1600 MG, DAILY
     Dates: start: 200104
  3. FERROUS SULFATE [Concomitant]
     Active Substance: FERROUS SULFATE\FERROUS SULFATE, DRIED
     Dosage: UNK
  4. RAMIPRIL. [Interacting]
     Active Substance: RAMIPRIL
     Indication: HYPERTENSION
     Dosage: UNK
     Dates: start: 200106
  5. ATENOLOL. [Suspect]
     Active Substance: ATENOLOL
     Indication: HYPERTENSION
     Dosage: UNK
     Dates: start: 199911
  6. CARBAMAT [Interacting]
     Active Substance: CARBAMAZEPINE
     Dosage: 800 MG, DAILY
     Dates: start: 200108
  7. CARBAMAT [Interacting]
     Active Substance: CARBAMAZEPINE
     Indication: CONVULSION
     Dosage: 200 MG, 2X/DAY
     Dates: start: 200101
  8. CARBAMAT [Interacting]
     Active Substance: CARBAMAZEPINE
     Dosage: 200 MG, DAILY
     Dates: start: 200106
  9. PHENYTOIN. [Concomitant]
     Active Substance: PHENYTOIN
     Indication: CONVULSION
     Dosage: UNK
     Dates: start: 199911, end: 200012
  10. ASPIRINE [Concomitant]
     Active Substance: ASPIRIN
     Dosage: UNK
  11. IRBESARTAN. [Concomitant]
     Active Substance: IRBESARTAN
     Dosage: UNK
  12. FELODIPINE. [Interacting]
     Active Substance: FELODIPINE
     Indication: HYPERTENSION
     Dosage: UNK
     Dates: start: 200104

REACTIONS (6)
  - Nervous system disorder [Unknown]
  - Drug interaction [Unknown]
  - Hypertension [Recovered/Resolved]
  - Dysarthria [Unknown]
  - Vertigo [Unknown]
  - Gait disturbance [Unknown]

NARRATIVE: CASE EVENT DATE: 200101
